FAERS Safety Report 5558556-1 (Version None)
Quarter: 2007Q4

REPORT INFORMATION
  Report Type: 
  Country: None (occurrence: None)
  Receive Date: 20071214
  Receipt Date: 20071004
  Transmission Date: 20080405
  Serious: No
  Sender: FDA-Public Use
  Company Number: US-ABBOTT-07P-163-0415877-00

PATIENT
  Sex: Male

DRUGS (7)
  1. HUMIRA [Suspect]
     Indication: CROHN'S DISEASE
     Dosage: SYRINGE
     Route: 058
     Dates: start: 20070301
  2. HUMIRA [Suspect]
     Dosage: SYRINGE
     Route: 058
     Dates: end: 20070825
  3. HUMIRA [Suspect]
     Dosage: PEN
     Route: 058
     Dates: start: 20070825
  4. VALPROATE SODIUM [Concomitant]
     Indication: CONVULSION
  5. LOPERAMIDE HCL [Concomitant]
     Indication: DIARRHOEA
  6. ANTIDEPRESSANTS [Concomitant]
     Indication: DRUG USE FOR UNKNOWN INDICATION
  7. UNKNOWN MEDICATION [Concomitant]
     Indication: TREMOR

REACTIONS (2)
  - DRUG INEFFECTIVE [None]
  - UNDERDOSE [None]
